FAERS Safety Report 18832072 (Version 1)
Quarter: 2021Q1

REPORT INFORMATION
  Report Type: Spontaneous
  Country: US (occurrence: US)
  Receive Date: 20210201
  Receipt Date: 20210201
  Transmission Date: 20210419
  Serious: Yes (Hospitalization, Other)
  Sender: FDA-Public Use
  Company Number: US-NOVOPROD-782170

PATIENT
  Sex: Female

DRUGS (3)
  1. LEVOTHYROXINE. [Concomitant]
     Active Substance: LEVOTHYROXINE
     Indication: PRODUCT USED FOR UNKNOWN INDICATION
     Dosage: 25MG
     Route: 065
  2. VICTOZA [Suspect]
     Active Substance: LIRAGLUTIDE
     Indication: PRODUCT USED FOR UNKNOWN INDICATION
     Dosage: UNK
     Route: 065
  3. LEVOTHYROXINE. [Concomitant]
     Active Substance: LEVOTHYROXINE
     Dosage: 50 MG DOSE INCREASED
     Route: 065

REACTIONS (8)
  - Cataract operation [Unknown]
  - Hypoaesthesia [Unknown]
  - Glycosylated haemoglobin increased [Unknown]
  - Wrong technique in product usage process [Unknown]
  - Blood glucose increased [Unknown]
  - Feeling abnormal [Unknown]
  - Fatigue [Unknown]
  - Balance disorder [Unknown]
